FAERS Safety Report 4640220-4 (Version None)
Quarter: 2005Q2

REPORT INFORMATION
  Report Type: 
  Country: None (occurrence: None)
  Receive Date: 20050419
  Receipt Date: 20050419
  Transmission Date: 20051028
  Serious: Yes (Hospitalization, Other)
  Sender: FDA-Public Use
  Company Number: 2005000224

PATIENT
  Age: 69 Year
  Sex: Male
  Weight: 91.173 kg

DRUGS (7)
  1. TARCEVA [Suspect]
     Indication: NON-SMALL CELL LUNG CANCER
     Dosage: SEE IMAGE
     Route: 048
     Dates: start: 20041228, end: 20050127
  2. TARCEVA [Suspect]
     Indication: NON-SMALL CELL LUNG CANCER
     Dosage: SEE IMAGE
     Route: 048
     Dates: start: 20050201, end: 20050321
  3. PRILOSEC [Concomitant]
  4. VICODIN [Concomitant]
  5. AMBIEN [Concomitant]
  6. TEMAZEPAM [Concomitant]
  7. CLONIDINE (CLONDINE) [Concomitant]

REACTIONS (11)
  - APHASIA [None]
  - ASTHENIA [None]
  - BLOOD PRESSURE INCREASED [None]
  - CEREBRAL VENTRICLE DILATATION [None]
  - DYSARTHRIA [None]
  - EOSINOPHILIA [None]
  - FATIGUE [None]
  - HYPERTENSIVE CRISIS [None]
  - LACUNAR INFARCTION [None]
  - NEOPLASM PROGRESSION [None]
  - RENAL CYST [None]
